FAERS Safety Report 5426252-7 (Version None)
Quarter: 2007Q3

REPORT INFORMATION
  Report Type: 
  Country: None (occurrence: None)
  Receive Date: 20070827
  Receipt Date: 20070820
  Transmission Date: 20080115
  Serious: Yes (Other)
  Sender: FDA-Public Use
  Company Number: JP-ASTRAZENECA-2007AP05291

PATIENT
  Age: 15 Year
  Sex: Male

DRUGS (2)
  1. PULMICORT RESPULES [Suspect]
     Indication: ASTHMA
     Route: 055
  2. QVAR 40 [Concomitant]
     Indication: ASTHMA

REACTIONS (2)
  - ASTHMA [None]
  - LIP OEDEMA [None]
